FAERS Safety Report 6243598-3 (Version None)
Quarter: 2009Q2

REPORT INFORMATION
  Report Type: 
  Country: None (occurrence: None)
  Receive Date: 20090622
  Receipt Date: 20090615
  Transmission Date: 20091009
  Serious: Yes (Hospitalization)
  Sender: FDA-Public Use
  Company Number: 2009SP013440

PATIENT
  Age: 35 Year
  Sex: Male

DRUGS (8)
  1. BETAMETHASONE SODIUM PHOSPHATE [Suspect]
     Indication: OROPHARYNGEAL PAIN
     Dosage: 4 MG; QD;
     Dates: start: 20090516, end: 20090516
  2. BETAMETHASONE SODIUM PHOSPHATE [Suspect]
     Indication: OROPHARYNGEAL PAIN
     Dosage: 4 MG; QD;
     Dates: start: 20090520, end: 20090520
  3. PL (NON-PYRINE PREPARATION FOR COLD SYNDROME) (OTHER COLD COMBINATION [Suspect]
     Indication: NASOPHARYNGITIS
     Dosage: 2 GM; QD; PO
     Route: 048
     Dates: start: 20090514, end: 20090514
  4. ORACEF (CEFALEXIN) [Suspect]
     Indication: OROPHARYNGEAL PAIN
     Dosage: 750 MG; QD; PO
     Route: 048
     Dates: start: 20090516, end: 20090525
  5. VALTREX [Suspect]
     Indication: ANGINA BULLOSA HAEMORRHAGICA
     Dosage: 1000 MG; QD; PO
     Route: 048
     Dates: start: 20090521, end: 20090525
  6. DALACIN-P [Concomitant]
  7. MUCOSTA [Concomitant]
  8. DALACIN-P [Concomitant]

REACTIONS (2)
  - LYMPHOCYTE STIMULATION TEST POSITIVE [None]
  - STEVENS-JOHNSON SYNDROME [None]
